FAERS Safety Report 16030269 (Version 2)
Quarter: 2019Q1

REPORT INFORMATION
  Report Type: Other
  Country: None (occurrence: US)
  Receive Date: 20190304
  Receipt Date: 20190305
  Transmission Date: 20190418
  Serious: Yes (Death, Hospitalization)
  Sender: FDA-Public Use
  Company Number: US-MEDAC PHARMA, INC.-2063501

PATIENT
  Age: 17 Year
  Sex: Male
  Weight: 39.1 kg

DRUGS (7)
  1. METHOTREXATE. [Suspect]
     Active Substance: METHOTREXATE
  2. ZINECARD [Suspect]
     Active Substance: DEXRAZOXANE HYDROCHLORIDE
  3. DEXAMETHASONE. [Suspect]
     Active Substance: DEXAMETHASONE
  4. DOXORUBICIN HYDROCHLORIDE. [Suspect]
     Active Substance: DOXORUBICIN HYDROCHLORIDE
  5. VINCRISTINE SULFATE. [Suspect]
     Active Substance: VINCRISTINE SULFATE
  6. ONCASPAR [Suspect]
     Active Substance: PEGASPARGASE
  7. GLEEVEC [Suspect]
     Active Substance: IMATINIB MESYLATE

REACTIONS (27)
  - Pancytopenia [Fatal]
  - Unresponsive to stimuli [Fatal]
  - Malnutrition [Unknown]
  - Pleural effusion [Fatal]
  - Blood product transfusion dependent [Unknown]
  - Diarrhoea [Unknown]
  - Respiratory acidosis [Fatal]
  - Fall [Fatal]
  - Hypotension [Unknown]
  - Clostridium difficile colitis [Unknown]
  - Renal failure [Fatal]
  - Decreased appetite [Unknown]
  - Jaundice [Fatal]
  - Blood lactic acid increased [Fatal]
  - Superior mesenteric artery syndrome [Unknown]
  - Subcutaneous emphysema [Unknown]
  - Dizziness [Unknown]
  - Respiratory failure [Fatal]
  - Pneumonia [Fatal]
  - Pseudomonas test positive [Fatal]
  - Haemophagocytic lymphohistiocytosis [Fatal]
  - Septic shock [Fatal]
  - Clostridium test positive [Fatal]
  - Pneumomediastinum [Fatal]
  - Adenovirus test positive [Fatal]
  - Hepatic function abnormal [Fatal]
  - Metabolic acidosis [Fatal]

NARRATIVE: CASE EVENT DATE: 20180830
